FAERS Safety Report 8932425 (Version 3)
Quarter: 2013Q2

REPORT INFORMATION
  Report Type: Spontaneous
  Country: DE (occurrence: DE)
  Receive Date: 20121128
  Receipt Date: 20130409
  Transmission Date: 20140414
  Serious: Yes (Other)
  Sender: FDA-Public Use
  Company Number: DE-JNJFOC-20121108601

PATIENT
  Age: 17 Year
  Sex: Male

DRUGS (1)
  1. RISPERDAL [Suspect]
     Indication: PRODUCT USED FOR UNKNOWN INDICATION
     Route: 048
     Dates: start: 20121114, end: 20121114

REACTIONS (5)
  - Suicide attempt [Unknown]
  - Tachycardia [Unknown]
  - Hypertension [Unknown]
  - Agitation [Unknown]
  - Intentional overdose [Unknown]
